FAERS Safety Report 20877628 (Version 1)
Quarter: 2022Q2

REPORT INFORMATION
  Report Type: Spontaneous
  Country: US (occurrence: None)
  Receive Date: 20220526
  Receipt Date: 20220526
  Transmission Date: 20220720
  Serious: Yes (Hospitalization)
  Sender: FDA-Public Use
  Company Number: None

PATIENT
  Age: 83 Year
  Sex: Male
  Weight: 86 kg

DRUGS (1)
  1. LISINOPRIL [Suspect]
     Active Substance: LISINOPRIL
     Indication: Hypertension
     Dosage: 40 MG EVERY DAY PO?
     Route: 048
     Dates: start: 20191209, end: 20220105

REACTIONS (1)
  - Angioedema [None]

NARRATIVE: CASE EVENT DATE: 20220105
